FAERS Safety Report 14568523 (Version 1)
Quarter: 2018Q1

REPORT INFORMATION
  Report Type: Spontaneous
  Country: US (occurrence: US)
  Receive Date: 20180223
  Receipt Date: 20180223
  Transmission Date: 20180509
  Serious: Yes (Hospitalization)
  Sender: FDA-Public Use
  Company Number: US-TEVA-2018-US-861215

PATIENT
  Age: 69 Year
  Sex: Female

DRUGS (30)
  1. LIPITOR [Concomitant]
     Active Substance: ATORVASTATIN CALCIUM
     Route: 065
  2. PLAVIX [Concomitant]
     Active Substance: CLOPIDOGREL BISULFATE
     Route: 065
  3. CHRONULAC [Concomitant]
     Active Substance: LACTULOSE
     Route: 065
     Dates: start: 20171114
  4. SINGULAIR [Concomitant]
     Active Substance: MONTELUKAST SODIUM
     Route: 065
  5. RANEXA [Concomitant]
     Active Substance: RANOLAZINE
     Route: 065
  6. PHENERGAN [Concomitant]
     Active Substance: PROMETHAZINE HYDROCHLORIDE
     Route: 065
     Dates: start: 20170908, end: 20171114
  7. SODIUM CHLORIDE. [Concomitant]
     Active Substance: SODIUM CHLORIDE
     Route: 065
     Dates: start: 20170809
  8. TUDORZA PRESSAIR [Concomitant]
     Active Substance: ACLIDINIUM BROMIDE
     Route: 065
  9. DEXILANT [Concomitant]
     Active Substance: DEXLANSOPRAZOLE
     Route: 065
  10. MIRALAX [Concomitant]
     Active Substance: POLYETHYLENE GLYCOL 3350
     Route: 065
     Dates: start: 20170809
  11. ALBUTEROL SULFATE. [Concomitant]
     Active Substance: ALBUTEROL SULFATE
     Route: 065
  12. LASIX [Concomitant]
     Active Substance: FUROSEMIDE
     Route: 065
     Dates: start: 20170817
  13. MYCOSTATIN [Concomitant]
     Active Substance: NYSTATIN
     Route: 065
     Dates: start: 20171017
  14. ZAROXOLYN [Concomitant]
     Active Substance: METOLAZONE
     Route: 065
     Dates: start: 20170817, end: 20171102
  15. ADVAIR HFA [Concomitant]
     Active Substance: FLUTICASONE PROPIONATE\SALMETEROL XINAFOATE
     Route: 065
     Dates: start: 20170809
  16. REGLAN [Concomitant]
     Active Substance: METOCLOPRAMIDE HYDROCHLORIDE
     Route: 065
     Dates: start: 20170822, end: 20171104
  17. ZYPREXA ZYDIS [Concomitant]
     Active Substance: OLANZAPINE
     Route: 065
     Dates: start: 20170912
  18. VALTREX [Concomitant]
     Active Substance: VALACYCLOVIR HYDROCHLORIDE
     Route: 065
     Dates: start: 20171017
  19. GEMTUZUMAB OZOGAMICIN [Suspect]
     Active Substance: GEMTUZUMAB OZOGAMICIN
     Dosage: 9 MG/M2
     Route: 042
     Dates: start: 20170719, end: 20170719
  20. RETINOIC ACID [Concomitant]
     Active Substance: TRETINOIN
     Dosage: 45 MG/KG
     Route: 048
     Dates: start: 20170713
  21. CATAPRES-TTS [Concomitant]
     Active Substance: CLONIDINE
     Dosage: ON THE SKIN ONCE A WEEK
     Route: 062
  22. ZETIA [Concomitant]
     Active Substance: EZETIMIBE
     Route: 065
  23. KLOR-CON [Concomitant]
     Active Substance: POTASSIUM CHLORIDE
     Route: 065
     Dates: start: 20171004
  24. VANTIN /01043502/ [Concomitant]
     Route: 065
     Dates: start: 20171107
  25. TRISENOX [Suspect]
     Active Substance: ARSENIC TRIOXIDE
     Route: 042
     Dates: start: 20170713
  26. ASPIRIN 81 [Concomitant]
     Active Substance: ASPIRIN
     Route: 065
  27. HUMALOG [Concomitant]
     Active Substance: INSULIN LISPRO
     Route: 065
  28. VASOTEC [Concomitant]
     Active Substance: ENALAPRIL MALEATE
     Dates: start: 20170809
  29. CARDIZEM CD [Concomitant]
     Active Substance: DILTIAZEM HYDROCHLORIDE
     Route: 065
  30. SANCUSO [Concomitant]
     Active Substance: GRANISETRON
     Route: 065
     Dates: start: 20171107

REACTIONS (1)
  - Hypotension [Not Recovered/Not Resolved]

NARRATIVE: CASE EVENT DATE: 20180202
